FAERS Safety Report 12091552 (Version 1)
Quarter: 2016Q1

REPORT INFORMATION
  Report Type: Spontaneous
  Country: IT (occurrence: IT)
  Receive Date: 20160218
  Receipt Date: 20160218
  Transmission Date: 20160526
  Serious: Yes (Hospitalization)
  Sender: FDA-Public Use
  Company Number: IT-DEP_13669_2016

PATIENT
  Age: 35 Year
  Sex: Male

DRUGS (2)
  1. VOLTFAST (DICLOFENAC POTASSIUM) [Suspect]
     Active Substance: DICLOFENAC POTASSIUM
     Indication: TOOTHACHE
     Dosage: 1 POSOLOGIC UNIT IN TOTAL
     Route: 048
     Dates: start: 20150918, end: 20150918
  2. CLAVULIN (AMOXICILLIN, CLAVULANATE POTASSIUM) [Suspect]
     Active Substance: AMOXICILLIN\CLAVULANATE POTASSIUM
     Indication: TOOTHACHE
     Dosage: 1 POSOLOGIC UNIT
     Route: 048
     Dates: start: 20150918, end: 20150918

REACTIONS (3)
  - Chills [Recovering/Resolving]
  - Malaise [Recovering/Resolving]
  - Band sensation [Recovering/Resolving]

NARRATIVE: CASE EVENT DATE: 20150918
